FAERS Safety Report 17869605 (Version 2)
Quarter: 2020Q2

REPORT INFORMATION
  Report Type: Spontaneous
  Country: JP (occurrence: JP)
  Receive Date: 20200608
  Receipt Date: 20200612
  Transmission Date: 20200714
  Serious: Yes (Other)
  Sender: FDA-Public Use
  Company Number: JP-BAXTER-2020BAX011518

PATIENT
  Age: 12 Year
  Sex: Male

DRUGS (11)
  1. BLEOMYCIN [Suspect]
     Active Substance: BLEOMYCIN SULFATE
     Dosage: AS PART OF 2 COURSES OF BEACOPP REGIMEN
     Route: 065
  2. ENDOXAN 1G [Suspect]
     Active Substance: CYCLOPHOSPHAMIDE
     Indication: HODGKIN^S DISEASE NODULAR SCLEROSIS STAGE II
     Dosage: AS PART OF 2 COURSES OF BEACOPP REGIMEN
     Route: 065
  3. BLEOMYCIN [Suspect]
     Active Substance: BLEOMYCIN SULFATE
     Indication: HODGKIN^S DISEASE NODULAR SCLEROSIS STAGE II
     Dosage: AS PART OF 4 COURSES OF ABVD REGIMEN
     Route: 065
  4. ONCOVIN [Suspect]
     Active Substance: VINCRISTINE SULFATE
     Indication: HODGKIN^S DISEASE NODULAR SCLEROSIS STAGE II
     Dosage: AS PART OF 2 COURSES OF BEACOPP REGIMEN
     Route: 065
  5. PROCARBAZINE HYDROCHLORIDE [Suspect]
     Active Substance: PROCARBAZINE HYDROCHLORIDE
     Indication: HODGKIN^S DISEASE NODULAR SCLEROSIS STAGE II
     Dosage: AS PART OF 2 COURSES OF BEACOPP REGIMEN
     Route: 065
  6. DOXORUBICIN HYDROCHLORIDE. [Suspect]
     Active Substance: DOXORUBICIN HYDROCHLORIDE
     Dosage: AS PART OF 2 COURSES OF BEACOPP REGIMEN
     Route: 065
  7. EXAL [VINBLASTINE SULFATE] [Suspect]
     Active Substance: VINBLASTINE SULFATE
     Indication: HODGKIN^S DISEASE NODULAR SCLEROSIS STAGE II
     Dosage: AS A PART OF 4 COURSES OF ABVD REGIMEN
     Route: 065
  8. DACARBAZINE. [Suspect]
     Active Substance: DACARBAZINE
     Indication: HODGKIN^S DISEASE NODULAR SCLEROSIS STAGE II
     Dosage: AS PART OF 4 COURSES OF ABVD REGIMEN
     Route: 065
  9. CELLTOP 100 MG/5 ML, SOLUTION INJECTABLE POUR PERFUSION [Suspect]
     Active Substance: ETOPOSIDE
     Indication: HODGKIN^S DISEASE NODULAR SCLEROSIS STAGE II
     Dosage: AS PART OF 2 COURSES OF BEACOPP REGIMEN
     Route: 065
  10. PREDNISOLONE. [Suspect]
     Active Substance: PREDNISOLONE
     Indication: HODGKIN^S DISEASE NODULAR SCLEROSIS STAGE II
     Dosage: AS PART OF 2 COURSES OF BEACOPP REGIMEN
     Route: 065
  11. DOXORUBICIN HYDROCHLORIDE. [Suspect]
     Active Substance: DOXORUBICIN HYDROCHLORIDE
     Indication: HODGKIN^S DISEASE NODULAR SCLEROSIS STAGE II
     Dosage: AS PART OF 4 COURSES OF ABVD REGIMEN
     Route: 065

REACTIONS (1)
  - Hyperthyroidism [Unknown]
